FAERS Safety Report 6985184-3 (Version None)
Quarter: 2010Q3

REPORT INFORMATION
  Report Type: 
  Country: None (occurrence: None)
  Receive Date: 20100915
  Receipt Date: 20100721
  Transmission Date: 20110219
  Serious: Yes (Death, Other)
  Sender: FDA-Public Use
  Company Number: PHHY2010JP49108

PATIENT
  Sex: Male
  Weight: 86 kg

DRUGS (6)
  1. DIOVAN [Suspect]
     Indication: HYPERTENSION
     Dosage: 160 MG IN TWO DIVIDED DOSES DAILY
     Route: 048
     Dates: start: 20071004, end: 20080801
  2. DIOVAN [Suspect]
     Dosage: 80 MG, QD
     Route: 048
     Dates: start: 20080802, end: 20090903
  3. DOXAZOSIN MESYLATE [Concomitant]
     Indication: HYPERTENSION
     Dosage: 4 MG, QD
     Route: 048
     Dates: start: 20071004, end: 20090903
  4. AZELASTINE HCL [Concomitant]
     Indication: HYPERTENSION
     Dosage: 16 MG, UNK
     Route: 048
     Dates: start: 20071004, end: 20090903
  5. LASIX [Concomitant]
     Dosage: 20 MG, QD
     Route: 048
     Dates: start: 20071004, end: 20090903
  6. LIPITOR [Concomitant]
     Dosage: 10 MG, UNK
     Route: 048
     Dates: start: 20071004, end: 20090903

REACTIONS (6)
  - AORTIC DISSECTION [None]
  - BLOOD PRESSURE INCREASED [None]
  - CARDIO-RESPIRATORY ARREST [None]
  - CHEST DISCOMFORT [None]
  - HEADACHE [None]
  - LOSS OF CONSCIOUSNESS [None]
